FAERS Safety Report 22908207 (Version 5)
Quarter: 2024Q2

REPORT INFORMATION
  Report Type: Spontaneous
  Country: US (occurrence: US)
  Receive Date: 20230905
  Receipt Date: 20240619
  Transmission Date: 20240716
  Serious: No
  Sender: FDA-Public Use
  Company Number: US-PFIZER INC-PV202300088800

PATIENT
  Age: 80 Year
  Sex: Female
  Weight: 77.11 kg

DRUGS (4)
  1. IBRANCE [Suspect]
     Active Substance: PALBOCICLIB
     Indication: Breast cancer metastatic
     Dosage: 125 MG, CYCLIC (125MG TABLET ONCE A DAY FOR 3 WEEKS, THEN 1 WEEK OFF)
     Dates: start: 202207
  2. IBRANCE [Suspect]
     Active Substance: PALBOCICLIB
     Indication: Malignant peritoneal neoplasm
     Dosage: 125 MG, CYCLIC, 1X DAILY 3 WEEKS - OFF 1 WEEK
     Dates: start: 202208
  3. IBRANCE [Suspect]
     Active Substance: PALBOCICLIB
     Indication: Bone cancer
     Dosage: 125 MG, CYCLIC, 1X DAILY 3 WEEKS, OFF 1 WEEK
     Dates: start: 20240609
  4. LETROZOLE [Concomitant]
     Active Substance: LETROZOLE
     Dosage: UNK
     Dates: start: 202208

REACTIONS (2)
  - Hypoacusis [Unknown]
  - Neoplasm progression [Unknown]
